FAERS Safety Report 13679351 (Version 1)
Quarter: 2017Q2

REPORT INFORMATION
  Report Type: Spontaneous
  Country: US (occurrence: US)
  Receive Date: 20170622
  Receipt Date: 20170622
  Transmission Date: 20170830
  Serious: No
  Sender: FDA-Public Use
  Company Number: US-SA-2017SA081287

PATIENT
  Age: 55 Year
  Sex: Male

DRUGS (2)
  1. IRON [Concomitant]
     Active Substance: IRON
  2. HECTOROL [Suspect]
     Active Substance: DOXERCALCIFEROL
     Route: 065
     Dates: start: 201704

REACTIONS (4)
  - Blood calcium increased [Not Recovered/Not Resolved]
  - Blood pressure increased [Recovered/Resolved]
  - Dysgeusia [Recovered/Resolved]
  - Pruritus [Recovered/Resolved]

NARRATIVE: CASE EVENT DATE: 2017
